FAERS Safety Report 9554080 (Version 2)
Quarter: 2013Q3

REPORT INFORMATION
  Report Type: Report from Study
  Country: ES (occurrence: ES)
  Receive Date: 20130925
  Receipt Date: 20130925
  Transmission Date: 20140515
  Serious: Yes (Hospitalization)
  Sender: FDA-Public Use
  Company Number: ES-ABBVIE-12P-144-0970322-00

PATIENT
  Age: 31 Year
  Sex: Female
  Weight: 53 kg

DRUGS (3)
  1. HUMIRA [Suspect]
     Indication: CROHN^S DISEASE
     Route: 058
     Dates: start: 20090525, end: 20090525
  2. HUMIRA [Suspect]
     Route: 058
     Dates: end: 20100910
  3. AZATHIOPRINE [Concomitant]
     Indication: PROPHYLAXIS
     Dates: start: 20060522

REACTIONS (5)
  - Coagulopathy [Unknown]
  - Malnutrition [Unknown]
  - Streptococcal sepsis [Unknown]
  - Pneumonia klebsiella [Unknown]
  - Haemoglobin decreased [Unknown]
